FAERS Safety Report 21081556 (Version 1)
Quarter: 2022Q3

REPORT INFORMATION
  Report Type: Spontaneous
  Country: US (occurrence: None)
  Receive Date: 20220713
  Receipt Date: 20220713
  Transmission Date: 20221026
  Serious: Yes (Hospitalization)
  Sender: FDA-Public Use
  Company Number: None

PATIENT
  Age: 69 Year
  Sex: Male
  Weight: 93.3 kg

DRUGS (1)
  1. FARXIGA [Suspect]
     Active Substance: DAPAGLIFLOZIN PROPANEDIOL
     Indication: Diabetes mellitus
     Dosage: 10MG DAILY ORAL?
     Route: 048
     Dates: start: 20220403, end: 20220503

REACTIONS (3)
  - Diabetic ketoacidosis [None]
  - Acute kidney injury [None]
  - Complications of transplanted kidney [None]

NARRATIVE: CASE EVENT DATE: 20220503
